FAERS Safety Report 14170652 (Version 1)
Quarter: 2017Q4

REPORT INFORMATION
  Report Type: Report from Study
  Country: US (occurrence: US)
  Receive Date: 20171108
  Receipt Date: 20171108
  Transmission Date: 20180321
  Serious: Yes (Other)
  Sender: FDA-Public Use
  Company Number: US-UCBSA-2017022376

PATIENT

DRUGS (5)
  1. MIRTAZAPINE. [Concomitant]
     Active Substance: MIRTAZAPINE
     Indication: PRODUCT USED FOR UNKNOWN INDICATION
     Dosage: UNK
  2. ROTIGOTINE [Suspect]
     Active Substance: ROTIGOTINE
     Indication: RESTLESS LEGS SYNDROME
     Dosage: STRENGTH 2 MG
  3. ROTIGOTINE [Suspect]
     Active Substance: ROTIGOTINE
     Dosage: STRENGTH 1 MG
  4. ROTIGOTINE [Suspect]
     Active Substance: ROTIGOTINE
     Dosage: STRENGTH 2 MG
  5. OXYCODONE [Concomitant]
     Active Substance: OXYCODONE
     Indication: PRODUCT USED FOR UNKNOWN INDICATION

REACTIONS (2)
  - Drug effect decreased [Unknown]
  - Suicidal behaviour [Unknown]
